FAERS Safety Report 5728267-8 (Version None)
Quarter: 2008Q2

REPORT INFORMATION
  Report Type: 
  Country: None (occurrence: None)
  Receive Date: 20080502
  Receipt Date: 20080502
  Transmission Date: 20081010
  Serious: Yes (Death)
  Sender: FDA-Public Use
  Company Number: None

PATIENT
  Age: 81 Year
  Sex: Female
  Weight: 63.05 kg

DRUGS (1)
  1. DIGITEK   .125MG  BERTEK PHA [Suspect]
     Indication: CARDIAC FAILURE CONGESTIVE
     Dosage: 1 TABLET DAILY PO
     Route: 048
     Dates: start: 20080324, end: 20080410

REACTIONS (6)
  - DYSPNOEA [None]
  - FLUID RETENTION [None]
  - HEART RATE INCREASED [None]
  - HEART RATE IRREGULAR [None]
  - PHARMACEUTICAL PRODUCT COMPLAINT [None]
  - WEIGHT INCREASED [None]
